FAERS Safety Report 18605023 (Version 2)
Quarter: 2020Q4

REPORT INFORMATION
  Report Type: Spontaneous
  Country: JP (occurrence: JP)
  Receive Date: 20201211
  Receipt Date: 20201223
  Transmission Date: 20210114
  Serious: Yes (Other)
  Sender: FDA-Public Use
  Company Number: JP-NOVOPROD-772502

PATIENT
  Sex: Male

DRUGS (1)
  1. TRESIBA [Suspect]
     Active Substance: INSULIN DEGLUDEC
     Indication: DIABETES MELLITUS
     Dosage: UNK
     Route: 058

REACTIONS (8)
  - Physical deconditioning [Unknown]
  - Abnormal sensation in eye [Unknown]
  - Glycosylated haemoglobin increased [Unknown]
  - Eye discharge [Unknown]
  - Asthenopia [Unknown]
  - Dizziness postural [Unknown]
  - Dyspnoea [Unknown]
  - Malaise [Unknown]
